FAERS Safety Report 5138638-9 (Version None)
Quarter: 2006Q4

REPORT INFORMATION
  Report Type: 
  Country: None (occurrence: None)
  Receive Date: 20061030
  Receipt Date: 20061026
  Transmission Date: 20070319
  Serious: Yes (Hospitalization)
  Sender: FDA-Public Use
  Company Number: FR-GLAXOSMITHKLINE-B0444239A

PATIENT
  Age: 42 Year
  Sex: Male

DRUGS (2)
  1. CLAMOXYL [Suspect]
     Indication: DENTAL CARE
     Route: 048
     Dates: start: 20060927, end: 20061001
  2. NIFLURIL [Suspect]
     Indication: DENTAL CARE
     Route: 048
     Dates: start: 20060927, end: 20061001

REACTIONS (7)
  - ABDOMINAL PAIN [None]
  - COLITIS [None]
  - DIARRHOEA [None]
  - ENTEROCOLITIS HAEMORRHAGIC [None]
  - KLEBSIELLA INFECTION [None]
  - RECTAL HAEMORRHAGE [None]
  - VOMITING [None]
